FAERS Safety Report 4401662-5 (Version None)
Quarter: 2004Q3

REPORT INFORMATION
  Report Type: 
  Country: None (occurrence: None)
  Receive Date: 20040714
  Receipt Date: 20040702
  Transmission Date: 20050211
  Serious: Yes (Death, Hospitalization)
  Sender: FDA-Public Use
  Company Number: USA-2003-0010449

PATIENT
  Age: 31 Year
  Sex: Female
  Weight: 57 kg

DRUGS (8)
  1. OXYCONTIN [Suspect]
     Indication: PAIN
     Dosage: 40 MG  ORAL
     Route: 048
  2. KLONOPIN [Suspect]
     Indication: PAIN
     Dosage: 2MG, TID, ORAL
     Route: 048
  3. CELEXA [Suspect]
     Indication: DEPRESSION
     Dosage: 20 MG, DAILY, ORAL
     Route: 048
  4. SALICYLATES (SALICYLATES) [Suspect]
  5. EFFEXOR [Concomitant]
  6. LORTAB [Concomitant]
  7. NORFLEX [Concomitant]
  8. VITAMIN  C [Concomitant]

REACTIONS (16)
  - ACCIDENTAL OVERDOSE [None]
  - ALCOHOL USE [None]
  - BACK PAIN [None]
  - BLOOD ALCOHOL INCREASED [None]
  - DEPRESSED LEVEL OF CONSCIOUSNESS [None]
  - DIZZINESS [None]
  - DRUG SCREEN POSITIVE [None]
  - HYPERGLYCAEMIA [None]
  - LIVER DISORDER [None]
  - MENTAL IMPAIRMENT [None]
  - MULTIPLE DRUG OVERDOSE [None]
  - PULMONARY OEDEMA [None]
  - RASH [None]
  - REFUSAL OF TREATMENT BY PATIENT [None]
  - SPLEEN DISORDER [None]
  - THIRST [None]
